FAERS Safety Report 9122749 (Version 2)
Quarter: 2013Q1

REPORT INFORMATION
  Report Type: Spontaneous
  Country: FR (occurrence: FR)
  Receive Date: 20130115
  Receipt Date: 20130308
  Transmission Date: 20140127
  Serious: Yes (Hospitalization)
  Sender: FDA-Public Use
  Company Number: FR-PFIZER INC-2012267522

PATIENT
  Age: 45 Year
  Sex: Female

DRUGS (17)
  1. FLUOROURACILE PFIZER [Suspect]
     Indication: SQUAMOUS CELL CARCINOMA
     Dosage: 6.64 G, SINGLE
     Route: 042
     Dates: start: 20120719, end: 20120719
  2. ERBITUX [Suspect]
     Indication: SQUAMOUS CELL CARCINOMA
     Dosage: 400 MG/M2 (910 MG) LOADING DOSE
     Route: 042
     Dates: start: 20120719
  3. ERBITUX [Suspect]
     Dosage: 250 MG/M2 (415 MG), MAINTENANCE DOSE
     Route: 042
     Dates: start: 20120801, end: 20120801
  4. CARBOPLATINE [Suspect]
     Indication: SQUAMOUS CELL CARCINOMA
     Dosage: 910 MG, SINGLE
     Route: 042
     Dates: start: 20120719, end: 20120719
  5. METHYLPREDNISOLONE [Suspect]
     Indication: PREMEDICATION
     Dosage: 120 MG, 1X/DAY
     Route: 042
     Dates: start: 20120719, end: 20120801
  6. ZOPHREN [Suspect]
     Indication: PREMEDICATION
     Dosage: 8 MG, 1X/DAY
     Route: 042
     Dates: start: 20120719, end: 201208
  7. INIPOMP [Concomitant]
     Dosage: 40 MG, 1X/DAY
     Route: 048
     Dates: start: 20120716
  8. ROCEPHINE [Concomitant]
     Indication: INFECTION PROPHYLAXIS
     Dosage: UNK
     Dates: start: 20120722, end: 20120728
  9. CIFLOX [Concomitant]
     Indication: INFECTION PROPHYLAXIS
     Dosage: UNK
     Dates: start: 20120722, end: 20120728
  10. SKENAN [Concomitant]
  11. ACTISKENAN [Concomitant]
     Dosage: UNK, AS NEEDED
  12. DIFFU K [Concomitant]
  13. IMOVANE [Concomitant]
  14. FORLAX [Concomitant]
  15. MAG 2 [Concomitant]
     Dosage: 2 DF, 2X/DAY
  16. CETIRIZINE [Concomitant]
     Indication: PREMEDICATION
     Dosage: 10 MG, SINGLE
     Dates: start: 20120801
  17. PERFALGAN [Concomitant]
     Indication: PREMEDICATION
     Dosage: 1 G, SINGLE
     Dates: start: 20120801

REACTIONS (2)
  - Convulsion [Recovering/Resolving]
  - Hypomagnesaemia [Recovering/Resolving]
